FAERS Safety Report 10526297 (Version 1)
Quarter: 2014Q4

REPORT INFORMATION
  Report Type: Spontaneous
  Country: US (occurrence: US)
  Receive Date: 20141019
  Receipt Date: 20141019
  Transmission Date: 20150528
  Serious: No
  Sender: FDA-Public Use
  Company Number: US-ASTRAZENECA-2014SE70865

PATIENT
  Age: 63 Year
  Sex: Female
  Weight: 49.9 kg

DRUGS (4)
  1. NEXIUM [Suspect]
     Active Substance: ESOMEPRAZOLE MAGNESIUM
     Indication: GASTROOESOPHAGEAL REFLUX DISEASE
     Route: 048
     Dates: start: 2010
  2. NEXIUM [Suspect]
     Active Substance: ESOMEPRAZOLE MAGNESIUM
     Indication: GASTROOESOPHAGEAL REFLUX DISEASE
     Route: 048
  3. NEXIUM [Suspect]
     Active Substance: ESOMEPRAZOLE MAGNESIUM
     Indication: GASTROOESOPHAGEAL REFLUX DISEASE
     Route: 048
  4. NEXIUM [Suspect]
     Active Substance: ESOMEPRAZOLE MAGNESIUM
     Indication: GASTROOESOPHAGEAL REFLUX DISEASE
     Route: 048
     Dates: start: 20140606

REACTIONS (13)
  - Abdominal pain upper [Unknown]
  - Chest pain [Unknown]
  - Fatigue [Unknown]
  - Abdominal discomfort [Unknown]
  - Intentional product misuse [Unknown]
  - Dyspepsia [Unknown]
  - Adverse drug reaction [Unknown]
  - Throat irritation [Unknown]
  - Chest discomfort [Unknown]
  - Intentional product use issue [Unknown]
  - Oesophageal pain [Unknown]
  - Palpitations [Unknown]
  - Concussion [Unknown]
